FAERS Safety Report 4290511-4 (Version None)
Quarter: 2004Q1

REPORT INFORMATION
  Report Type: 
  Country: None (occurrence: None)
  Receive Date: 20040209
  Receipt Date: 20040122
  Transmission Date: 20041129
  Serious: Yes (Hospitalization, Other)
  Sender: FDA-Public Use
  Company Number: 701387

PATIENT
  Age: 66 Year
  Sex: Female

DRUGS (5)
  1. AMEVIVE [Suspect]
     Indication: PSORIASIS
     Dosage: 7.5 MG QW IV
     Route: 042
     Dates: start: 20030804, end: 20031022
  2. METHOTREXATE [Concomitant]
  3. ELAVIL [Concomitant]
  4. PROZAC [Concomitant]
  5. SYNTHROID [Concomitant]

REACTIONS (3)
  - ENCEPHALITIS HERPES [None]
  - HERPES SIMPLEX [None]
  - MENINGITIS [None]
